FAERS Safety Report 6585840-5 (Version None)
Quarter: 2010Q1

REPORT INFORMATION
  Report Type: 
  Country: None (occurrence: None)
  Receive Date: 20100217
  Receipt Date: 20100203
  Transmission Date: 20100710
  Serious: Yes (Other)
  Sender: FDA-Public Use
  Company Number: JP-PFIZER INC-2010002605

PATIENT
  Age: 26 Year
  Sex: Female
  Weight: 52 kg

DRUGS (10)
  1. SOLU-MEDROL [Suspect]
     Indication: HEPATITIS B
     Dosage: 500 MG, 1X/DAY
     Route: 042
     Dates: start: 20090717, end: 20090718
  2. SOLU-MEDROL [Suspect]
     Dosage: 1000 MG, 1X/DAY
     Route: 042
     Dates: start: 20090701, end: 20090703
  3. SOLU-MEDROL [Suspect]
     Dosage: 750 MG, 1X/DAY
     Route: 042
     Dates: start: 20090704, end: 20090706
  4. SOLU-MEDROL [Suspect]
     Dosage: 500 MG, 1X/DAY
     Route: 042
     Dates: start: 20090707, end: 20090709
  5. SOLU-MEDROL [Suspect]
     Dosage: 250 MG, 1X/DAY
     Route: 042
     Dates: start: 20090710, end: 20090712
  6. SANDIMMUNE [Suspect]
     Indication: HEPATITIS B
     Dosage: 25 MG, 1X/DAY
     Dates: start: 20090707, end: 20090714
  7. SANDIMMUNE [Suspect]
     Dosage: 12.5 MG, 1X/DAY
     Route: 042
     Dates: start: 20090701, end: 20090706
  8. NEORAL [Suspect]
     Indication: HEPATITIS B
     Dosage: 25 MG, 2X/DAY
     Route: 048
     Dates: start: 20090730, end: 20090807
  9. INTERFERON [Concomitant]
     Indication: HEPATITIS B
     Dosage: UNK MG, 1X/DAY
  10. ENTECAVIR [Concomitant]
     Indication: HEPATITIS B
     Dosage: 0.5 MG, 1X/DAY
     Dates: start: 20090701, end: 20090812

REACTIONS (4)
  - BULLOUS LUNG DISEASE [None]
  - INFLAMMATORY BOWEL DISEASE [None]
  - MYASTHENIA GRAVIS [None]
  - PNEUMATOSIS INTESTINALIS [None]
